FAERS Safety Report 11012519 (Version 1)
Quarter: 2015Q2

REPORT INFORMATION
  Report Type: Spontaneous
  Country: US (occurrence: None)
  Receive Date: 20150410
  Receipt Date: 20150410
  Transmission Date: 20150821
  Serious: No
  Sender: FDA-Public Use
  Company Number: None

PATIENT
  Age: 7 Year
  Sex: Male
  Weight: 20.87 kg

DRUGS (3)
  1. METHYLPHENIDATE [Suspect]
     Active Substance: METHYLPHENIDATE
     Indication: ATTENTION DEFICIT/HYPERACTIVITY DISORDER
     Dosage: 1 PILL ONCE DAILY TAKEN BY MOUTH
     Route: 048
  2. CALCIUM GUMMY [Concomitant]
  3. LIL CRITTERS GUMMY VITES [Concomitant]

REACTIONS (7)
  - Mental disorder [None]
  - Feeling abnormal [None]
  - Mood altered [None]
  - Product substitution issue [None]
  - Disturbance in attention [None]
  - Anger [None]
  - Memory impairment [None]
